FAERS Safety Report 23796001 (Version 6)
Quarter: 2025Q2

REPORT INFORMATION
  Report Type: Spontaneous
  Country: UY (occurrence: UY)
  Receive Date: 20240429
  Receipt Date: 20250529
  Transmission Date: 20250716
  Serious: Yes (Life-Threatening, Hospitalization, Other)
  Sender: BRISTOL-MYERS SQUIBB COMPANY
  Company Number: UY-BRISTOL-MYERS SQUIBB COMPANY-2024-064742

PATIENT
  Age: 70 Year
  Sex: Male

DRUGS (17)
  1. OPDIVO [Suspect]
     Active Substance: NIVOLUMAB
     Indication: Renal cancer metastatic
     Route: 042
     Dates: start: 2019
  2. OPDIVO [Suspect]
     Active Substance: NIVOLUMAB
     Indication: Clear cell renal cell carcinoma
     Route: 042
     Dates: start: 202204, end: 202503
  3. WARFARIN [Concomitant]
     Active Substance: WARFARIN
     Indication: Prostate cancer
  4. BISOPROLOL FUMARATE [Concomitant]
     Active Substance: BISOPROLOL FUMARATE
     Indication: Prostate cancer
  5. PREGABALIN [Concomitant]
     Active Substance: PREGABALIN
     Indication: Antipyresis
  6. PREGABALIN [Concomitant]
     Active Substance: PREGABALIN
     Indication: Analgesic therapy
  7. TRAMADOL [Concomitant]
     Active Substance: TRAMADOL
     Indication: Pain
  8. PROSTAM [Concomitant]
     Indication: Benign prostatic hyperplasia
  9. HIPOVACOR [Concomitant]
     Indication: Blood cholesterol increased
  10. HIPOVACOR [Concomitant]
     Indication: Cardiovascular event prophylaxis
  11. CORODEX [Concomitant]
     Indication: Palliative care
  12. CORODEX [Concomitant]
     Indication: Increased appetite
  13. CORODEX [Concomitant]
     Indication: Antiemetic supportive care
  14. CORODEX [Concomitant]
     Indication: Nausea
  15. CORODEX [Concomitant]
     Indication: Mood altered
  16. ALERFEDINE [TERFENADINE] [Concomitant]
     Indication: Seasonal allergy
  17. DILTIAZEM [Concomitant]
     Active Substance: DILTIAZEM
     Indication: Atrial fibrillation

REACTIONS (11)
  - Atrioventricular block [Recovered/Resolved]
  - Fatigue [Recovered/Resolved]
  - Eczema [Recovering/Resolving]
  - Pemphigoid [Not Recovered/Not Resolved]
  - Blister [Not Recovered/Not Resolved]
  - Hyperglycaemia [Recovering/Resolving]
  - Dyspnoea exertional [Unknown]
  - Atrial enlargement [Recovering/Resolving]
  - Oedema peripheral [Unknown]
  - Vena cava thrombosis [Unknown]
  - Retroperitoneal mass [Unknown]

NARRATIVE: CASE EVENT DATE: 20240419
